FAERS Safety Report 4635785-2 (Version None)
Quarter: 2005Q2

REPORT INFORMATION
  Report Type: 
  Country: None (occurrence: None)
  Receive Date: 20050413
  Receipt Date: 20050330
  Transmission Date: 20051028
  Serious: No
  Sender: FDA-Public Use
  Company Number: 05P-082-0296021-00

PATIENT
  Sex: Female

DRUGS (3)
  1. BIAXIN [Suspect]
  2. OMEPRAZOLE [Suspect]
     Dosage: 40 MG
  3. AMOXICILLIN [Suspect]

REACTIONS (3)
  - ABORTION INDUCED [None]
  - CHROMOSOME ANALYSIS ABNORMAL [None]
  - DRUG EXPOSURE DURING PREGNANCY [None]
